FAERS Safety Report 23423311 (Version 1)
Quarter: 2024Q1

REPORT INFORMATION
  Report Type: Spontaneous
  Country: FR (occurrence: FR)
  Receive Date: 20240119
  Receipt Date: 20240119
  Transmission Date: 20240410
  Serious: Yes (Hospitalization)
  Sender: FDA-Public Use
  Company Number: None

PATIENT
  Age: 24 Year
  Sex: Male

DRUGS (6)
  1. VENLAFAXINE [Suspect]
     Active Substance: VENLAFAXINE HYDROCHLORIDE
     Indication: Product used for unknown indication
     Dosage: 3X75MG/DAY MISUSE
     Route: 048
     Dates: start: 2022
  2. OXAZEPAM [Suspect]
     Active Substance: OXAZEPAM
     Indication: Product used for unknown indication
     Dosage: 150 MG, QD(OXAZEPAM AYERST 50 MG, SCORED TABLET, MISUSE, TAKE 3 TABS PER DAY INSTEAD OF 1 TAB)
     Route: 048
     Dates: start: 2022
  3. LORMETAZEPAM [Suspect]
     Active Substance: LORMETAZEPAM
     Indication: Product used for unknown indication
     Dosage: 8 MG, QD (TAKE 4 TABS INSTEAD OF 1 PER DAY), SCORED TABLET
     Route: 048
     Dates: start: 2022
  4. CODEINE [Suspect]
     Active Substance: CODEINE
     Indication: Product used for unknown indication
     Dosage: UNK
     Route: 048
     Dates: start: 2022
  5. COCAINE [Suspect]
     Active Substance: COCAINE
     Indication: Product used for unknown indication
     Dosage: 8 GM QW (1 TO 2 TIMES PER WEEK)
     Route: 045
     Dates: start: 2018
  6. TRIMEPRAZINE [Suspect]
     Active Substance: TRIMEPRAZINE
     Indication: Product used for unknown indication
     Dosage: 200 DROPS PER DAY INSTEAD OF 50 DROPS MISUSE
     Route: 048
     Dates: start: 2022

REACTIONS (2)
  - Drug dependence [Recovering/Resolving]
  - Intentional product misuse [Unknown]
